FAERS Safety Report 7424550-9 (Version None)
Quarter: 2011Q2

REPORT INFORMATION
  Report Type: 
  Country: None (occurrence: None)
  Receive Date: 20110419
  Receipt Date: 20110407
  Transmission Date: 20111010
  Serious: Yes (Hospitalization, Other)
  Sender: FDA-Public Use
  Company Number: US-AMGEN-USASP2011016583

PATIENT
  Age: 44 Year
  Sex: Female

DRUGS (1)
  1. ENBREL [Suspect]
     Indication: RHEUMATOID ARTHRITIS
     Dosage: 25 MG, 2 TIMES/WK
     Dates: start: 20040101

REACTIONS (29)
  - INTERVERTEBRAL DISC DEGENERATION [None]
  - TENDON RUPTURE [None]
  - OSTEOMYELITIS [None]
  - FALL [None]
  - RHEUMATOID ARTHRITIS [None]
  - RHEUMATOID NODULE [None]
  - ORAL CANDIDIASIS [None]
  - PLANTAR FASCIITIS [None]
  - PAIN [None]
  - MORTON'S NEUROMA [None]
  - ABDOMINAL MASS [None]
  - SCAR [None]
  - NEUROPATHY PERIPHERAL [None]
  - ATELECTASIS [None]
  - APHASIA [None]
  - SYNCOPE [None]
  - MIGRAINE [None]
  - SINUSITIS [None]
  - HEAD INJURY [None]
  - TACHYCARDIA [None]
  - ROAD TRAFFIC ACCIDENT [None]
  - ATRIAL SEPTAL DEFECT [None]
  - EXCORIATION [None]
  - LIPOMA [None]
  - GALLBLADDER DISORDER [None]
  - AMNESIA [None]
  - WOUND INFECTION STAPHYLOCOCCAL [None]
  - ABDOMINAL PAIN [None]
  - NEUROMA [None]
